FAERS Safety Report 4756584-7 (Version None)
Quarter: 2005Q3

REPORT INFORMATION
  Report Type: 
  Country: None (occurrence: None)
  Receive Date: 20050830
  Receipt Date: 20050824
  Transmission Date: 20060218
  Serious: Yes (Disabling)
  Sender: FDA-Public Use
  Company Number: IT-ROCHE-415236

PATIENT
  Age: 67 Year
  Sex: Male

DRUGS (2)
  1. DACLIZUMAB [Suspect]
     Route: 048
     Dates: start: 20050701, end: 20050810
  2. FK506 [Suspect]
     Route: 048
     Dates: start: 20050701, end: 20050810

REACTIONS (1)
  - CENTRAL PONTINE MYELINOLYSIS [None]
